FAERS Safety Report 7374540-X (Version None)
Quarter: 2011Q1

REPORT INFORMATION
  Report Type: 
  Country: None (occurrence: None)
  Receive Date: 20110325
  Receipt Date: 20100226
  Transmission Date: 20110831
  Serious: No
  Sender: FDA-Public Use
  Company Number: US-MYLANLABS-2010S1003412

PATIENT
  Age: 68 Year
  Sex: Male

DRUGS (14)
  1. PROVIGIL [Concomitant]
  2. FENTANYL-100 [Suspect]
     Dosage: Q48H
     Route: 062
     Dates: start: 20100101
  3. ASPIRIN [Concomitant]
  4. ACETAMINOPHEN [Concomitant]
     Route: 048
  5. FENTANYL-100 [Suspect]
     Dosage: Q72H
     Route: 062
     Dates: start: 20090101, end: 20100101
  6. PERCOCET [Concomitant]
  7. LORAZEPAM [Concomitant]
  8. ASCORBIC ACID [Concomitant]
  9. FENTANYL-100 [Suspect]
     Dosage: Q48H
     Route: 062
     Dates: start: 20100101
  10. OMEPRAZOLE [Concomitant]
  11. MULTI-VITAMIN [Concomitant]
  12. FENTANYL-100 [Suspect]
     Indication: PANCREATITIS CHRONIC
     Dosage: Q72H
     Route: 062
     Dates: start: 20090101, end: 20100101
  13. ULTRASE MT20 [Concomitant]
  14. ONDANSETRON [Concomitant]

REACTIONS (3)
  - DRUG WITHDRAWAL SYNDROME [None]
  - DRUG EFFECT DECREASED [None]
  - PAIN [None]
